FAERS Safety Report 11748672 (Version 1)
Quarter: 2015Q4

REPORT INFORMATION
  Report Type: Spontaneous
  Country: DE (occurrence: DE)
  Receive Date: 20151117
  Receipt Date: 20151117
  Transmission Date: 20160304
  Serious: Yes (Hospitalization, Other)
  Sender: FDA-Public Use
  Company Number: DE-MYLANLABS-2015M1039961

PATIENT

DRUGS (5)
  1. KETAMINE [Suspect]
     Active Substance: KETAMINE
     Dosage: 2 G IN DIVIDED MANNER
     Route: 030
  2. KETAMINE [Suspect]
     Active Substance: KETAMINE
     Indication: BACK PAIN
     Route: 030
  3. KETAMINE [Suspect]
     Active Substance: KETAMINE
     Dosage: 50 MG ONCE A WEEK FOR 6-8 WEEKS
     Route: 030
  4. DIAZEPAM. [Concomitant]
     Active Substance: DIAZEPAM
     Indication: RESTLESSNESS
     Dosage: UP TO 20MG OCASSIONALLY
  5. KETAMINE [Suspect]
     Active Substance: KETAMINE
     Dosage: 0.4 G ONCE DAILY FOR 4-6 WEEKS
     Route: 030

REACTIONS (8)
  - Drug abuse [Recovered/Resolved]
  - Dissociative disorder [Recovered/Resolved]
  - Drug withdrawal syndrome [Recovered/Resolved]
  - Confusional state [Recovered/Resolved]
  - Amnesia [Recovered/Resolved]
  - Loss of consciousness [Recovered/Resolved]
  - Euphoric mood [Recovered/Resolved]
  - Drug dependence [Recovered/Resolved]
